FAERS Safety Report 8997901 (Version 2)
Quarter: 2013Q1

REPORT INFORMATION
  Report Type: Spontaneous
  Country: US (occurrence: US)
  Receive Date: 20130104
  Receipt Date: 20130305
  Transmission Date: 20140127
  Serious: Yes (Other)
  Sender: FDA-Public Use
  Company Number: US-JNJFOC-20121211977

PATIENT
  Age: 47 Year
  Sex: Female
  Weight: 77.11 kg

DRUGS (15)
  1. BENGAY [Suspect]
     Indication: BACK PAIN
     Route: 061
     Dates: start: 20041009, end: 20041009
  2. MAXZIDE [Concomitant]
     Indication: HYPERTENSION
     Route: 065
  3. MOTRIN [Concomitant]
     Route: 065
  4. VALIUM [Concomitant]
     Indication: MUSCLE SPASMS
     Route: 065
  5. UNKNOWN MEDICATION [Concomitant]
     Route: 065
  6. INHALER NOS [Concomitant]
     Route: 065
  7. PREDNISONE [Concomitant]
     Route: 065
  8. PROTONIX [Concomitant]
     Indication: GASTROOESOPHAGEAL REFLUX DISEASE
     Route: 065
  9. ALBUTEROL [Concomitant]
     Indication: ASTHMA
     Route: 065
  10. VICODIN [Concomitant]
     Indication: PAIN
     Route: 065
  11. BENTYL [Concomitant]
     Indication: PAIN
     Route: 065
  12. CALAN SR [Concomitant]
     Indication: HYPERTENSION
     Route: 065
  13. QVAR [Concomitant]
     Indication: ASTHMA
     Route: 065
  14. CELEBREX [Concomitant]
     Route: 065
  15. UNKNOWN MEDICATION [Concomitant]
     Route: 065

REACTIONS (4)
  - Dermatitis [Recovering/Resolving]
  - Back pain [Recovering/Resolving]
  - Stress [Recovering/Resolving]
  - Activities of daily living impaired [Recovering/Resolving]
